FAERS Safety Report 16760062 (Version 1)
Quarter: 2019Q3

REPORT INFORMATION
  Report Type: Spontaneous
  Country: US (occurrence: US)
  Receive Date: 20190711
  Receipt Date: 20190711
  Transmission Date: 20191005
  Serious: No
  Sender: FDA-Public Use
  Company Number: None

PATIENT
  Age: 85 Year
  Sex: Male
  Weight: 65.77 kg

DRUGS (5)
  1. CEPHALEXIN 500MG [Suspect]
     Active Substance: CEPHALEXIN
     Indication: LOCALISED INFECTION
     Dosage: ?          QUANTITY:1 PILL EVERY 12 HR;?
     Route: 048
     Dates: start: 20190618, end: 20190620
  2. VITAMIN C [Concomitant]
     Active Substance: ASCORBIC ACID
  3. VITAMIN D [Concomitant]
     Active Substance: VITAMIN D NOS
  4. OSTEO-BI FLEX [Concomitant]
  5. EYE VITAMIN AREDS 2 [Concomitant]

REACTIONS (4)
  - Pruritus [None]
  - Pain in extremity [None]
  - Rash [None]
  - Swelling [None]

NARRATIVE: CASE EVENT DATE: 20190620
